FAERS Safety Report 8093597-4 (Version None)
Quarter: 2012Q1

REPORT INFORMATION
  Report Type: 
  Country: None (occurrence: None)
  Receive Date: 20120129
  Receipt Date: 20111011
  Transmission Date: 20120608
  Serious: No
  Sender: FDA-Public Use
  Company Number: US-ABBOTT-11P-163-0856925-00

PATIENT
  Age: 29 Year
  Sex: Male

DRUGS (3)
  1. HUMIRA [Suspect]
     Indication: PSORIATIC ARTHROPATHY
     Route: 058
     Dates: start: 20110908
  2. HUMIRA [Suspect]
     Indication: ANKYLOSING SPONDYLITIS
  3. SULFASALAZINE [Concomitant]
     Indication: PRODUCT USED FOR UNKNOWN INDICATION
     Dosage: TWO IN THE AM ONE IN THE PM

REACTIONS (7)
  - INJECTION SITE PAIN [None]
  - INJECTION SITE HAEMATOMA [None]
  - GASTRIC DISORDER [None]
  - INJECTION SITE REACTION [None]
  - DRUG DOSE OMISSION [None]
  - WRONG TECHNIQUE IN DRUG USAGE PROCESS [None]
  - ABDOMINAL DISCOMFORT [None]
